FAERS Safety Report 5329051-X (Version None)
Quarter: 2007Q2

REPORT INFORMATION
  Report Type: 
  Country: None (occurrence: None)
  Receive Date: 20070518
  Receipt Date: 20070507
  Transmission Date: 20071010
  Serious: Yes (Hospitalization, Other)
  Sender: FDA-Public Use
  Company Number: US-PFIZER INC-2006112090

PATIENT
  Sex: Male
  Weight: 104.3 kg

DRUGS (8)
  1. CAVERJECT [Suspect]
     Indication: ERECTILE DYSFUNCTION
  2. CIALIS [Concomitant]
     Indication: ERECTILE DYSFUNCTION
     Route: 048
  3. LEVITRA [Concomitant]
     Indication: ERECTILE DYSFUNCTION
     Route: 048
  4. KEFLEX [Concomitant]
     Dosage: DAILY DOSE:250MG
     Route: 048
  5. CLARITIN-D [Concomitant]
  6. ALEVE [Concomitant]
  7. IBUPROFEN [Concomitant]
  8. MULTI-VITAMINS [Concomitant]
     Dosage: FREQ:EVERY DAY

REACTIONS (5)
  - ANXIETY [None]
  - FOREIGN BODY TRAUMA [None]
  - INCISION SITE HAEMATOMA [None]
  - SCROTAL HAEMATOMA [None]
  - SWELLING [None]
